FAERS Safety Report 9150158 (Version 3)
Quarter: 2013Q1

REPORT INFORMATION
  Report Type: Spontaneous
  Country: US (occurrence: None)
  Receive Date: 20130219
  Receipt Date: 20130319
  Transmission Date: 20140127
  Serious: Yes (Hospitalization)
  Sender: FDA-Public Use
  Company Number: USA/USA/13/0027955

PATIENT
  Age: 66 Year
  Sex: Female
  Weight: 75.75 kg

DRUGS (2)
  1. ATORVASTATIN [Suspect]
     Indication: BLOOD CHOLESTEROL INCREASED
     Dosage: 40 MG, 1 IN 1 D, UNKNOWN
     Dates: start: 201211, end: 20130115
  2. LOSARTAN (LOSARTAN) [Concomitant]

REACTIONS (1)
  - Chronic lymphocytic leukaemia [None]
